FAERS Safety Report 20440880 (Version 1)
Quarter: 2022Q1

REPORT INFORMATION
  Report Type: Spontaneous
  Country: US (occurrence: US)
  Receive Date: 20220207
  Receipt Date: 20220207
  Transmission Date: 20220423
  Serious: Yes (Other)
  Sender: FDA-Public Use
  Company Number: US-BEH-2022141517

PATIENT
  Sex: Female

DRUGS (1)
  1. PRIVIGEN [Suspect]
     Active Substance: HUMAN IMMUNOGLOBULIN G
     Indication: Polyneuropathy
     Dosage: 50 GRAM EVERY 3 WEEKS
     Route: 042
     Dates: start: 202011

REACTIONS (3)
  - Visual impairment [Unknown]
  - Product distribution issue [Unknown]
  - Illness [Unknown]
